FAERS Safety Report 5635319-X (Version None)
Quarter: 2008Q1

REPORT INFORMATION
  Report Type: 
  Country: None (occurrence: None)
  Receive Date: 20080222
  Receipt Date: 20080211
  Transmission Date: 20080703
  Serious: Yes (Life-Threatening, Hospitalization, Other)
  Sender: FDA-Public Use
  Company Number: DE-PFIZER INC-2008007862

PATIENT
  Sex: Male
  Weight: 79 kg

DRUGS (2)
  1. LYRICA [Suspect]
     Indication: POLYNEUROPATHY
     Route: 048
  2. ASPIRIN [Concomitant]

REACTIONS (7)
  - BICYTOPENIA [None]
  - COUGH [None]
  - DYSPNOEA [None]
  - MYELOFIBROSIS [None]
  - MYELOID LEUKAEMIA [None]
  - MYELOPROLIFERATIVE DISORDER [None]
  - THROMBOCYTOPENIA [None]
